FAERS Safety Report 8425419-3 (Version None)
Quarter: 2012Q2

REPORT INFORMATION
  Report Type: 
  Country: None (occurrence: None)
  Receive Date: 20120605
  Receipt Date: 20120605
  Transmission Date: 20120825
  Serious: No
  Sender: FDA-Public Use
  Company Number: None

PATIENT
  Age: 61 Year
  Sex: Female

DRUGS (1)
  1. AFINITOR [Suspect]
     Indication: BREAST CANCER
     Dosage: 10 MG DAILY PO
     Route: 048
     Dates: start: 20120222

REACTIONS (4)
  - DIARRHOEA [None]
  - RASH [None]
  - HEADACHE [None]
  - ABDOMINAL PAIN UPPER [None]
